FAERS Safety Report 8184889-9 (Version None)
Quarter: 2012Q1

REPORT INFORMATION
  Report Type: 
  Country: None (occurrence: None)
  Receive Date: 20120305
  Receipt Date: 20120301
  Transmission Date: 20120608
  Serious: Yes (Other)
  Sender: FDA-Public Use
  Company Number: US-GLAXOSMITHKLINE-A0898648A

PATIENT
  Age: 61 Year
  Sex: Male
  Weight: 87.3 kg

DRUGS (1)
  1. AVANDIA [Suspect]
     Indication: TYPE 2 DIABETES MELLITUS
     Route: 065
     Dates: start: 20010711, end: 20060625

REACTIONS (1)
  - MYOCARDIAL INFARCTION [None]
